FAERS Safety Report 24062825 (Version 4)
Quarter: 2024Q3

REPORT INFORMATION
  Report Type: Spontaneous
  Country: JP (occurrence: JP)
  Receive Date: 20240709
  Receipt Date: 20240916
  Transmission Date: 20241016
  Serious: Yes (Hospitalization, Other)
  Sender: CHATTEM
  Company Number: JP-SAKK-2021SA299449AA

PATIENT
  Age: 40 Year
  Sex: Male
  Weight: 100 kg

DRUGS (3)
  1. ALLEGRA [Suspect]
     Active Substance: FEXOFENADINE HYDROCHLORIDE
     Indication: Rhinitis allergic
     Dosage: DOSE DESCRIPTION : 3 DF
     Route: 048
  2. ALLEGRA [Suspect]
     Active Substance: FEXOFENADINE HYDROCHLORIDE
     Indication: Pruritus
     Dosage: DOSE DESCRIPTION : 4 DF
     Route: 048
  3. ALLEGRA [Suspect]
     Active Substance: FEXOFENADINE HYDROCHLORIDE
     Dosage: DOSE DESCRIPTION : UNK
     Route: 048

REACTIONS (33)
  - Hyperglycaemia [Recovered/Resolved]
  - Vomiting [Recovered/Resolved]
  - Loss of consciousness [Recovered/Resolved]
  - Fall [Recovered/Resolved]
  - Depressed level of consciousness [Recovered/Resolved]
  - Diabetic coma [Recovered/Resolved]
  - Hallucination [Unknown]
  - Paroxysmal perceptual alteration [Unknown]
  - Hallucination, auditory [Unknown]
  - Hallucination, auditory [Unknown]
  - Dizziness [Recovered/Resolved]
  - Hypoglycaemia [Unknown]
  - Weight increased [Recovering/Resolving]
  - Diabetic neuropathy [Recovered/Resolved]
  - Gait inability [Recovered/Resolved]
  - Tremor [Unknown]
  - Feeling abnormal [Unknown]
  - Blood prolactin increased [Unknown]
  - Nasopharyngitis [Unknown]
  - Cough [Unknown]
  - Productive cough [Unknown]
  - White blood cell count decreased [Unknown]
  - Dermal cyst [Recovered/Resolved]
  - Hyperlipidaemia [Unknown]
  - Dysarthria [Unknown]
  - Muscular weakness [Unknown]
  - Somnolence [Unknown]
  - Neutrophil count decreased [Unknown]
  - Stupor [Unknown]
  - Condition aggravated [Unknown]
  - Back pain [Unknown]
  - Pruritus [Unknown]
  - Therapeutic response decreased [Unknown]

NARRATIVE: CASE EVENT DATE: 20060101
